FAERS Safety Report 21331584 (Version 1)
Quarter: 2022Q3

REPORT INFORMATION
  Report Type: Spontaneous
  Country: US (occurrence: US)
  Receive Date: 20220914
  Receipt Date: 20220914
  Transmission Date: 20221026
  Serious: No
  Sender: FDA-Public Use
  Company Number: US-AMGEN-USASP2022152742

PATIENT
  Sex: Female

DRUGS (1)
  1. REPATHA [Suspect]
     Active Substance: EVOLOCUMAB
     Indication: Arterial stenosis
     Dosage: 140 MILLIGRAM, Q2WK
     Route: 058
     Dates: start: 20211027

REACTIONS (2)
  - Drug effect less than expected [Unknown]
  - Adverse reaction [Unknown]
